FAERS Safety Report 6507821-X (Version None)
Quarter: 2009Q4

REPORT INFORMATION
  Report Type: 
  Country: None (occurrence: None)
  Receive Date: 20091221
  Receipt Date: 20091209
  Transmission Date: 20100525
  Serious: Yes (Death, Hospitalization)
  Sender: FDA-Public Use
  Company Number: A0788924A

PATIENT
  Age: 55 Year
  Sex: Female

DRUGS (7)
  1. ELTROMBOPAG [Suspect]
     Indication: IDIOPATHIC THROMBOCYTOPENIC PURPURA
     Route: 048
     Dates: start: 20081210
  2. UNKNOWN MEDICATION [Concomitant]
     Indication: IDIOPATHIC THROMBOCYTOPENIC PURPURA
  3. COUMADIN [Concomitant]
  4. LOVENOX [Concomitant]
  5. PERCOCET [Concomitant]
  6. ARIXTRA [Concomitant]
  7. LORAZEPAM [Concomitant]

REACTIONS (3)
  - ADENOCARCINOMA [None]
  - EMBOLISM [None]
  - LUNG CARCINOMA CELL TYPE UNSPECIFIED STAGE IV [None]
